FAERS Safety Report 8203236-7 (Version None)
Quarter: 2012Q1

REPORT INFORMATION
  Report Type: 
  Country: None (occurrence: None)
  Receive Date: 20120312
  Receipt Date: 20120308
  Transmission Date: 20120608
  Serious: No
  Sender: FDA-Public Use
  Company Number: US-PFIZER INC-2012002420

PATIENT
  Sex: Female

DRUGS (7)
  1. LYRICA [Suspect]
     Dosage: 100 MG, 2X/DAY
  2. ALPRAZOLAM [Concomitant]
  3. ZOLPIDEM [Concomitant]
     Dosage: 10 MG, UNK
  4. PRISTIQ [Suspect]
     Dosage: 50 MG, 1X/DAY
  5. FLEXERIL [Concomitant]
  6. OXYCODONE [Concomitant]
     Dosage: 10-325MG
  7. OMEPRAZOLE [Concomitant]
     Dosage: 40 MG, UNK

REACTIONS (3)
  - BACK PAIN [None]
  - FIBROMYALGIA [None]
  - ARTHRALGIA [None]
